FAERS Safety Report 17430664 (Version 1)
Quarter: 2020Q1

REPORT INFORMATION
  Report Type: Spontaneous
  Country: US (occurrence: US)
  Receive Date: 20200218
  Receipt Date: 20200218
  Transmission Date: 20200409
  Serious: No
  Sender: FDA-Public Use
  Company Number: US-PERRIGO-19US012343

PATIENT
  Sex: Female
  Weight: 86.17 kg

DRUGS (1)
  1. KETOCONAZOLE. [Suspect]
     Active Substance: KETOCONAZOLE
     Indication: LICHEN PLANOPILARIS
     Dosage: SMALL AMOUNT, TWICE WEEKLY
     Route: 061
     Dates: start: 2018

REACTIONS (2)
  - Off label use [Unknown]
  - Hair colour changes [Recovering/Resolving]

NARRATIVE: CASE EVENT DATE: 2018
